FAERS Safety Report 5714337-7 (Version None)
Quarter: 2008Q2

REPORT INFORMATION
  Report Type: 
  Country: None (occurrence: None)
  Receive Date: 20080419
  Receipt Date: 20080419
  Transmission Date: 20081010
  Serious: Yes (Hospitalization)
  Sender: FDA-Public Use
  Company Number: None

PATIENT
  Sex: Male
  Weight: 111 kg

DRUGS (2)
  1. BYETTA [Suspect]
     Indication: TYPE 2 DIABETES MELLITUS
     Dosage: 10 MCG BID SQ
     Route: 058
     Dates: start: 20080102, end: 20080228
  2. PLACEBO [Suspect]
     Dosage: 10 MCG  BID  SQ
     Route: 058

REACTIONS (1)
  - ELECTROCARDIOGRAM P WAVE ABNORMAL [None]
